FAERS Safety Report 8309517-0 (Version None)
Quarter: 2012Q2

REPORT INFORMATION
  Report Type: 
  Country: None (occurrence: None)
  Receive Date: 20120425
  Receipt Date: 20120423
  Transmission Date: 20120825
  Serious: Yes (Hospitalization)
  Sender: FDA-Public Use
  Company Number: US-PFIZER INC-2012100364

PATIENT
  Sex: Male

DRUGS (2)
  1. LYRICA [Suspect]
     Indication: NEUROPATHY PERIPHERAL
     Dosage: UNK
     Route: 048
     Dates: start: 20110101, end: 20120101
  2. LYRICA [Suspect]
     Dosage: 25 MG, 2X/DAY
     Route: 048
     Dates: start: 20120101

REACTIONS (1)
  - RENAL FAILURE [None]
